FAERS Safety Report 17785412 (Version 6)
Quarter: 2021Q3

REPORT INFORMATION
  Report Type: Other
  Country: US (occurrence: US)
  Receive Date: 20200514
  Receipt Date: 20210903
  Transmission Date: 20211014
  Serious: Yes (Other)
  Sender: FDA-Public Use
  Company Number: US-ROCHE-2596864

PATIENT
  Age: 43 Year
  Sex: Female
  Weight: 71.73 kg

DRUGS (7)
  1. POTASSIUM GLUCONATE [Concomitant]
     Active Substance: POTASSIUM GLUCONATE
     Indication: BLOOD POTASSIUM DECREASED
     Route: 048
     Dates: start: 2014
  2. VITAMIN D3 [Concomitant]
     Active Substance: CHOLECALCIFEROL
     Route: 048
     Dates: start: 2017
  3. OCREVUS [Suspect]
     Active Substance: OCRELIZUMAB
     Indication: MULTIPLE SCLEROSIS
     Route: 042
  4. MAGNESIUM [Concomitant]
     Active Substance: MAGNESIUM
     Indication: BLOOD MAGNESIUM DECREASED
     Route: 048
     Dates: start: 2014
  5. OCREVUS [Suspect]
     Active Substance: OCRELIZUMAB
     Indication: RELAPSING-REMITTING MULTIPLE SCLEROSIS
     Dosage: DATE OF TREATMENT: 08/MAR/2019 ,22/MAR/2019, 23/SEP/2019, 23/MAR/2020. 22/JUN/2020
     Route: 042
     Dates: start: 20190308
  6. RADIOACTIVE IODINE SOLUTION [Suspect]
     Active Substance: SODIUM IODIDE I-131
     Indication: THYROID CANCER
     Route: 065
     Dates: start: 20200416
  7. LEVOTHYROXINE. [Concomitant]
     Active Substance: LEVOTHYROXINE
     Dosage: PATIENT STATED 1 TABLET DAILY, 2 TABS ON SUNDAY
     Route: 048

REACTIONS (9)
  - Tumour marker increased [Not Recovered/Not Resolved]
  - Back pain [Not Recovered/Not Resolved]
  - Drug ineffective [Unknown]
  - Fatigue [Not Recovered/Not Resolved]
  - Lymphadenopathy [Recovered/Resolved]
  - Multiple sclerosis relapse [Recovered/Resolved]
  - Neuropathy peripheral [Not Recovered/Not Resolved]
  - Weight increased [Unknown]
  - Thyroid cancer recurrent [Not Recovered/Not Resolved]

NARRATIVE: CASE EVENT DATE: 201912
